FAERS Safety Report 4522838-2 (Version None)
Quarter: 2004Q4

REPORT INFORMATION
  Report Type: 
  Country: None (occurrence: None)
  Receive Date: 20041207
  Receipt Date: 20041125
  Transmission Date: 20050328
  Serious: Yes (Hospitalization)
  Sender: FDA-Public Use
  Company Number: A02200403504

PATIENT
  Age: 77 Year
  Sex: Female

DRUGS (5)
  1. KERLONE [Suspect]
     Indication: HYPERTENSION
     Dosage: 20 MG OD ORAL
     Route: 048
  2. LEVOTHYROXINE SODIUM [Suspect]
     Indication: HYPOTHYROIDISM
     Dosage: 100 MCG QD ORAL
     Route: 048
  3. ALDACTAZINE - (SPIRONOLACTONE, ALTIZIDE) - TABLET - 25 MG [Suspect]
     Indication: HYPERTENSION
     Dosage: 12.5 MG OD ORAL
     Route: 048
     Dates: end: 20040804
  4. HEXAQUINE - (QUININE, THIAMINE) - TABLET - 160 MG [Suspect]
     Dosage: 2 UNIT ORAL
     Route: 048
     Dates: end: 20040804
  5. AERIUS (DESLORATADINE) [Concomitant]

REACTIONS (6)
  - ANTIBODY TEST POSITIVE [None]
  - CHOLESTASIS [None]
  - CYTOLYTIC HEPATITIS [None]
  - HEPATITIS A [None]
  - LIVER FUNCTION TEST ABNORMAL [None]
  - SEROLOGY POSITIVE [None]
